FAERS Safety Report 17818827 (Version 4)
Quarter: 2020Q3

REPORT INFORMATION
  Report Type: Spontaneous
  Country: US (occurrence: US)
  Receive Date: 20200522
  Receipt Date: 20200731
  Transmission Date: 20201102
  Serious: Yes (Death, Life-Threatening, Hospitalization, Other)
  Sender: FDA-Public Use
  Company Number: US-GILEAD-2020-0468514

PATIENT
  Age: 52 Year
  Sex: Female
  Weight: 98.3 kg

DRUGS (29)
  1. ASPIRIN EC [Concomitant]
     Active Substance: ASPIRIN
     Dosage: UNK
     Dates: start: 20200515
  2. CHLORHEXIDINE [Concomitant]
     Active Substance: CHLORHEXIDINE
  3. HEPARIN [Concomitant]
     Active Substance: HEPARIN SODIUM
  4. ATORVASTATIN [Concomitant]
     Active Substance: ATORVASTATIN
     Dosage: UNK
     Dates: start: 20200515
  5. ZINC. [Concomitant]
     Active Substance: ZINC
     Dosage: UNK
     Dates: start: 20200516
  6. METOPROLOL. [Concomitant]
     Active Substance: METOPROLOL
  7. POTASSIUM CHLORIDE. [Concomitant]
     Active Substance: POTASSIUM CHLORIDE
  8. DIPHENHYDRAMINE. [Concomitant]
     Active Substance: DIPHENHYDRAMINE
     Dosage: UNK
     Dates: start: 20200516
  9. ACETAMINOPHEN. [Concomitant]
     Active Substance: ACETAMINOPHEN
     Dosage: UNK
     Dates: start: 20200515, end: 20200518
  10. ALBUTEROL [SALBUTAMOL] [Concomitant]
     Active Substance: ALBUTEROL
     Dosage: UNK
     Dates: start: 20200515, end: 20200518
  11. INSULIN ASPART [Concomitant]
     Active Substance: INSULIN ASPART
  12. ONDANSETRON [Concomitant]
     Active Substance: ONDANSETRON
     Dosage: UNK
     Dates: start: 20200516
  13. APIXABAN [Concomitant]
     Active Substance: APIXABAN
  14. METRONIDAZOLE. [Concomitant]
     Active Substance: METRONIDAZOLE
  15. REMDESIVIR. [Suspect]
     Active Substance: REMDESIVIR
     Indication: COVID-19 PNEUMONIA
     Dosage: 100 MG
     Route: 065
     Dates: start: 20200515
  16. DOXYCYCLINE. [Concomitant]
     Active Substance: DOXYCYCLINE
     Dosage: UNK
     Dates: start: 20200515
  17. PYRIDOSTIGMINE [Concomitant]
     Active Substance: PYRIDOSTIGMINE
     Dosage: UNK
     Dates: start: 20200515
  18. KETAMINE [Concomitant]
     Active Substance: KETAMINE
  19. CALCIUM CARBONATE. [Concomitant]
     Active Substance: CALCIUM CARBONATE
     Dosage: UNK
     Dates: start: 20200515
  20. FAMOTIDINE. [Concomitant]
     Active Substance: FAMOTIDINE
     Dosage: UNK
     Dates: start: 20200516
  21. FUROSEMIDE. [Concomitant]
     Active Substance: FUROSEMIDE
  22. INSULIN DETEMIR [Concomitant]
     Active Substance: INSULIN DETEMIR
  23. CEFEPIME [Concomitant]
     Active Substance: CEFEPIME HYDROCHLORIDE
  24. DEXMEDETOMIDINE. [Concomitant]
     Active Substance: DEXMEDETOMIDINE
  25. CYCLOBENZAPRINE. [Concomitant]
     Active Substance: CYCLOBENZAPRINE
     Dosage: UNK
     Dates: start: 20200515
  26. AMIODARONE [Concomitant]
     Active Substance: AMIODARONE
     Dosage: UNK
     Dates: start: 20200516
  27. FENTANYL. [Concomitant]
     Active Substance: FENTANYL
  28. CEFTRIAXONE. [Concomitant]
     Active Substance: CEFTRIAXONE
     Dosage: UNK
     Dates: start: 20200515, end: 20200518
  29. LORAZEPAM. [Concomitant]
     Active Substance: LORAZEPAM

REACTIONS (2)
  - Death [Fatal]
  - Respiratory distress [Fatal]

NARRATIVE: CASE EVENT DATE: 20200516
